FAERS Safety Report 9419920 (Version 1)
Quarter: 2013Q3

REPORT INFORMATION
  Report Type: Spontaneous
  Country: US (occurrence: None)
  Receive Date: 20130723
  Receipt Date: 20130723
  Transmission Date: 20140515
  Serious: Yes (Other)
  Sender: FDA-Public Use
  Company Number: None

PATIENT
  Age: 39 Year
  Sex: Female
  Weight: 104.33 kg

DRUGS (1)
  1. LAMOTRIGIN [Suspect]
     Indication: BIPOLAR DISORDER
     Route: 048
     Dates: start: 20130228, end: 20130323

REACTIONS (3)
  - Wheezing [None]
  - Product substitution issue [None]
  - Drug ineffective [None]
